FAERS Safety Report 6157169-0 (Version None)
Quarter: 2009Q2

REPORT INFORMATION
  Report Type: 
  Country: None (occurrence: None)
  Receive Date: 20090416
  Receipt Date: 20090408
  Transmission Date: 20091009
  Serious: Yes (Other)
  Sender: FDA-Public Use
  Company Number: US-BAXTER-2009BH004523

PATIENT
  Sex: Male

DRUGS (3)
  1. ROBINUL [Suspect]
     Indication: APTYALISM
     Route: 065
  2. ROBINUL [Suspect]
     Route: 065
  3. PROPOFOL [Concomitant]
     Indication: SEDATION
     Route: 065

REACTIONS (7)
  - ANXIETY [None]
  - DRUG TOXICITY [None]
  - DYSPHORIA [None]
  - HYPERTENSION [None]
  - MENTAL STATUS CHANGES [None]
  - PANIC ATTACK [None]
  - TACHYCARDIA [None]
